FAERS Safety Report 8305572 (Version 3)
Quarter: 2013Q2

REPORT INFORMATION
  Report Type: Spontaneous
  Country: US (occurrence: US)
  Receive Date: 20111221
  Receipt Date: 20130612
  Transmission Date: 20140414
  Serious: Yes (Hospitalization)
  Sender: FDA-Public Use
  Company Number: US-BAYER-2011-119814

PATIENT
  Age: 15 Year
  Sex: Female
  Weight: 99.77 kg

DRUGS (12)
  1. YAZ [Suspect]
     Indication: PREMENSTRUAL SYNDROME
     Dosage: UNK
     Dates: start: 200902, end: 200905
  2. YAZ [Suspect]
     Indication: PREMENSTRUAL SYNDROME
  3. ALLEGRA [Concomitant]
     Dosage: 30 MG, BID
     Route: 048
  4. SINGULAIR [Concomitant]
     Dosage: UNK
     Route: 048
  5. ADVAIR [Concomitant]
     Dosage: 2 PUFF(S), UNK
     Route: 055
  6. VERAMYST [Concomitant]
  7. KETOROLAC [Concomitant]
     Dosage: UNK
     Dates: start: 20091009
  8. SULFAMETHOXAZOLE W/TRIMETHOPRIM [Concomitant]
     Dosage: UNK
     Dates: start: 20091010
  9. FLUCONAZOLE [Concomitant]
     Dosage: 150 MG, UNK
     Dates: start: 20091020
  10. BACTRIM [Concomitant]
     Indication: PNEUMONIA
  11. OMNICEF [Concomitant]
     Indication: PNEUMONIA
  12. TORADOL [Concomitant]

REACTIONS (2)
  - Pulmonary embolism [None]
  - Injury [None]
